FAERS Safety Report 16453609 (Version 6)
Quarter: 2020Q2

REPORT INFORMATION
  Report Type: Report from Study
  Country: US (occurrence: US)
  Receive Date: 20190619
  Receipt Date: 20200601
  Transmission Date: 20200713
  Serious: Yes (Hospitalization, Other)
  Sender: FDA-Public Use
  Company Number: US-ACTELION-A-US2019-185262

PATIENT
  Age: 74 Year
  Sex: Female
  Weight: 58.5 kg

DRUGS (6)
  1. VELETRI [Suspect]
     Active Substance: EPOPROSTENOL
     Dosage: 31.64 NG/KG, PER MIN
     Route: 042
  2. VELETRI [Suspect]
     Active Substance: EPOPROSTENOL
     Indication: PULMONARY HYPERTENSION
     Dosage: 32.81 NG/KG, PER MIN
     Route: 042
  3. VELETRI [Suspect]
     Active Substance: EPOPROSTENOL
     Dosage: UNK
     Route: 042
  4. VELETRI [Suspect]
     Active Substance: EPOPROSTENOL
     Dosage: 33.59 NG/KG, PER MIN
     Route: 042
  5. VELETRI [Suspect]
     Active Substance: EPOPROSTENOL
     Dosage: 15.88 NG/KG, PER MIN
     Route: 042
  6. LETAIRIS [Concomitant]
     Active Substance: AMBRISENTAN

REACTIONS (27)
  - Lip injury [Unknown]
  - Dyspnoea exertional [Recovering/Resolving]
  - Skin irritation [Unknown]
  - Weight decreased [Unknown]
  - Hypotension [Unknown]
  - Clumsiness [Unknown]
  - Pyrexia [Unknown]
  - Ascites [Unknown]
  - Face injury [Unknown]
  - Oropharyngeal pain [Unknown]
  - Condition aggravated [Unknown]
  - Catheter site erythema [Recovering/Resolving]
  - Scleroderma [Unknown]
  - Catheter site infection [Unknown]
  - Fall [Unknown]
  - Depression [Recovering/Resolving]
  - Tremor [Unknown]
  - Headache [Unknown]
  - Pain in jaw [Unknown]
  - Pain [Recovering/Resolving]
  - Tooth fracture [Unknown]
  - Feeling abnormal [Recovering/Resolving]
  - Rash [Unknown]
  - Haemoglobin decreased [Unknown]
  - Visual impairment [Unknown]
  - Catheter site swelling [Recovered/Resolved]
  - Catheter site rash [Recovering/Resolving]

NARRATIVE: CASE EVENT DATE: 201902
